FAERS Safety Report 7981731-3 (Version None)
Quarter: 2011Q4

REPORT INFORMATION
  Report Type: 
  Country: None (occurrence: None)
  Receive Date: 20111215
  Receipt Date: 20111207
  Transmission Date: 20120403
  Serious: Yes (Hospitalization)
  Sender: FDA-Public Use
  Company Number: FR-JNJFOC-20111110652

PATIENT
  Age: 45 Year
  Sex: Female

DRUGS (10)
  1. LOVENOX [Suspect]
     Indication: STAPHYLOCOCCAL SEPSIS
     Route: 058
     Dates: start: 20110726, end: 20110808
  2. LEVOFLOXACIN [Suspect]
     Route: 065
     Dates: start: 20110714, end: 20110722
  3. GENTAMICIN SULFATE [Suspect]
     Indication: SEPSIS
     Route: 065
     Dates: start: 20110725, end: 20110804
  4. LEVOFLOXACIN [Suspect]
     Indication: STAPHYLOCOCCAL SEPSIS
     Route: 065
     Dates: start: 20110727
  5. LEVOFLOXACIN [Suspect]
     Route: 065
     Dates: start: 20110727
  6. TARGOCID [Suspect]
     Indication: STAPHYLOCOCCAL SEPSIS
     Route: 065
     Dates: start: 20110725, end: 20110803
  7. OXYCODONE HCL [Suspect]
     Indication: PAIN
     Route: 048
     Dates: start: 20110726
  8. LEVOFLOXACIN [Suspect]
     Indication: NASOPHARYNGITIS
     Route: 065
     Dates: start: 20110714, end: 20110722
  9. PIPERACILLIN AND TAZOBACTAM [Suspect]
     Indication: LUNG DISORDER
     Route: 065
     Dates: start: 20110731, end: 20110812
  10. HYDROXYZINE [Concomitant]
     Route: 065
     Dates: start: 20110731

REACTIONS (1)
  - DRUG RASH WITH EOSINOPHILIA AND SYSTEMIC SYMPTOMS [None]
